FAERS Safety Report 9222701 (Version 1)
Quarter: 2013Q2

REPORT INFORMATION
  Report Type: Spontaneous
  Country: FR (occurrence: FR)
  Receive Date: 20130410
  Receipt Date: 20130410
  Transmission Date: 20140414
  Serious: Yes (Hospitalization)
  Sender: FDA-Public Use
  Company Number: FR-PFIZER INC-2013104926

PATIENT
  Age: 15 Year
  Sex: Female

DRUGS (3)
  1. ADVIL [Suspect]
     Dosage: 16 DF, SINGLE
     Route: 048
     Dates: start: 20121008, end: 20121008
  2. RHINADVIL [Suspect]
     Dosage: 6 DF, SINGLE
     Route: 048
     Dates: start: 20121008, end: 20121008
  3. SEROPLEX [Suspect]
     Dosage: 1 DF, SINGLE
     Route: 048
     Dates: start: 20121008, end: 20121008

REACTIONS (1)
  - Poisoning [Recovered/Resolved]
